FAERS Safety Report 4493298-5 (Version None)
Quarter: 2004Q4

REPORT INFORMATION
  Report Type: 
  Country: None (occurrence: None)
  Receive Date: 20041102
  Receipt Date: 20041014
  Transmission Date: 20050328
  Serious: Yes (Death, Hospitalization)
  Sender: FDA-Public Use
  Company Number: USA040977369

PATIENT
  Age: 60 Year
  Sex: Female

DRUGS (1)
  1. GEMZAR [Suspect]
     Indication: OVARIAN CANCER
     Dosage: 2000 MG
     Dates: start: 20040525, end: 20040803

REACTIONS (12)
  - CARDIAC FAILURE CONGESTIVE [None]
  - DIFFUSE ALVEOLAR DAMAGE [None]
  - HYPERCAPNIA [None]
  - HYPOXIA [None]
  - LUNG INFILTRATION [None]
  - OEDEMA PERIPHERAL [None]
  - PNEUMOCYSTIS CARINII INFECTION [None]
  - PNEUMONIA [None]
  - PNEUMOTHORAX [None]
  - PULMONARY HYPERTENSION [None]
  - RESPIRATORY FAILURE [None]
  - SPLEEN DISORDER [None]
